FAERS Safety Report 18664843 (Version 1)
Quarter: 2020Q4

REPORT INFORMATION
  Report Type: Report from Study
  Country: AR (occurrence: AR)
  Receive Date: 20201225
  Receipt Date: 20201225
  Transmission Date: 20210114
  Serious: Yes (Other)
  Sender: FDA-Public Use
  Company Number: PHHY2018AR070728

PATIENT
  Sex: Female

DRUGS (4)
  1. XOLAIR [Suspect]
     Active Substance: OMALIZUMAB
     Dosage: 600 MG, QMO (150 MG (4 MONTHLY)
     Route: 065
  2. XOLAIR [Suspect]
     Active Substance: OMALIZUMAB
     Indication: ASTHMA
     Dosage: 600 MG, QMO (150 MG (4 MONTHLY)
     Route: 058
     Dates: start: 20171030
  3. DAILY VITAMINS [Concomitant]
     Active Substance: VITAMINS
     Indication: PROPHYLAXIS
     Route: 065
  4. CALCIUM [Suspect]
     Active Substance: CALCIUM
     Indication: PROPHYLAXIS
     Dosage: UNK
     Route: 065

REACTIONS (17)
  - Nervousness [Not Recovered/Not Resolved]
  - Deafness [Unknown]
  - Fracture [Not Recovered/Not Resolved]
  - Incoherent [Unknown]
  - Back pain [Recovering/Resolving]
  - Calcium deficiency [Not Recovered/Not Resolved]
  - Chronic obstructive pulmonary disease [Unknown]
  - Muscular dystrophy [Not Recovered/Not Resolved]
  - Malaise [Recovering/Resolving]
  - Agitation [Not Recovered/Not Resolved]
  - Lung disorder [Not Recovered/Not Resolved]
  - Fear [Not Recovered/Not Resolved]
  - Breath odour [Not Recovered/Not Resolved]
  - Fatigue [Recovering/Resolving]
  - Osteopenia [Not Recovered/Not Resolved]
  - Depressed mood [Recovering/Resolving]
  - Hypoacusis [Not Recovered/Not Resolved]
